FAERS Safety Report 22352340 (Version 6)
Quarter: 2024Q2

REPORT INFORMATION
  Report Type: Spontaneous
  Country: US (occurrence: US)
  Receive Date: 20230522
  Receipt Date: 20240423
  Transmission Date: 20240716
  Serious: Yes (Disabling, Other)
  Sender: FDA-Public Use
  Company Number: US-HORIZON THERAPEUTICS-HZN-2023-003813

PATIENT

DRUGS (30)
  1. TEPEZZA [Suspect]
     Active Substance: TEPROTUMUMAB-TRBW
     Indication: Endocrine ophthalmopathy
     Dosage: 620 MG 1ST INFUSION
     Route: 042
     Dates: start: 20210611
  2. TEPEZZA [Suspect]
     Active Substance: TEPROTUMUMAB-TRBW
     Indication: Graves^ disease
     Dosage: 1200 MG SECOND INFUSION
     Route: 042
     Dates: start: 20210702
  3. TEPEZZA [Suspect]
     Active Substance: TEPROTUMUMAB-TRBW
     Dosage: 1200 MG THIRD INFUSION
     Route: 042
     Dates: start: 20210723
  4. TEPEZZA [Suspect]
     Active Substance: TEPROTUMUMAB-TRBW
     Dosage: 1200 MG FOURTH INFUSION
     Route: 042
     Dates: start: 20210813
  5. TEPEZZA [Suspect]
     Active Substance: TEPROTUMUMAB-TRBW
     Dosage: 1220 MG FIFTH INFUSION
     Route: 042
     Dates: start: 20210903
  6. TEPEZZA [Suspect]
     Active Substance: TEPROTUMUMAB-TRBW
     Dosage: 1220 MG SIXTH INFUSION
     Route: 042
     Dates: start: 20210924
  7. TEPEZZA [Suspect]
     Active Substance: TEPROTUMUMAB-TRBW
     Dosage: 1220 MG SEVENTH INFUSION
     Route: 042
     Dates: start: 20211015
  8. TEPEZZA [Suspect]
     Active Substance: TEPROTUMUMAB-TRBW
     Dosage: 1220 MG 8TH INFUSION
     Route: 042
     Dates: start: 20211105, end: 202111
  9. IBANDRONATE APOTEX [Concomitant]
     Dosage: 150 MG
     Route: 048
     Dates: start: 20190615
  10. LORAZEPAM [Concomitant]
     Active Substance: LORAZEPAM
     Dosage: 1 MG
  11. PROGESTERONE [Concomitant]
     Active Substance: PROGESTERONE
     Dosage: 200 MG
     Route: 048
  12. PRASTERONE [Concomitant]
     Active Substance: PRASTERONE
     Dosage: 15 MG, QD
     Route: 048
  13. APIXABAN [Concomitant]
     Active Substance: APIXABAN
     Dosage: 5 MG
     Route: 048
     Dates: start: 20220129
  14. FUROSEMIDE [Concomitant]
     Active Substance: FUROSEMIDE
     Dosage: 20 MG
     Route: 048
     Dates: start: 20210326
  15. PREDNISONE [Concomitant]
     Active Substance: PREDNISONE
     Dosage: 20 MG, QD
     Route: 048
  16. SELENIUM CITRATE [Concomitant]
     Dosage: 100 UG
     Route: 048
     Dates: start: 20211220
  17. METOPROLOL SUCCINATE [Concomitant]
     Active Substance: METOPROLOL SUCCINATE
     Dosage: 100 MG, QD
     Route: 048
     Dates: start: 20210618
  18. LEVOTHYROXINE [Concomitant]
     Active Substance: LEVOTHYROXINE\LEVOTHYROXINE SODIUM
     Dosage: 125 UG, QD
     Route: 048
     Dates: start: 20210708
  19. PRASTERONE [Concomitant]
     Active Substance: PRASTERONE
     Dosage: 15 MG, QD
     Route: 048
  20. DILTIAZEM [Concomitant]
     Active Substance: DILTIAZEM
     Dosage: 120 MG
     Route: 048
  21. ELIQUIS [Concomitant]
     Active Substance: APIXABAN
     Dosage: 5 MG
     Route: 048
  22. AMBIEN [Concomitant]
     Active Substance: ZOLPIDEM TARTRATE
  23. BONIVA [Concomitant]
     Active Substance: IBANDRONATE SODIUM
  24. ESTROGEL [Concomitant]
     Active Substance: ESTRADIOL
     Dosage: 1.25 GRAM/ACTUATION (0.06%)
  25. FLECAINIDE [Concomitant]
     Active Substance: FLECAINIDE
  26. JATENZO [Concomitant]
     Active Substance: TESTOSTERONE UNDECANOATE
  27. KAPSPARGO [Concomitant]
     Active Substance: METOPROLOL SUCCINATE
  28. LASIX [Concomitant]
     Active Substance: FUROSEMIDE
  29. METHIMAZOLE [Concomitant]
     Active Substance: METHIMAZOLE
  30. PREDNISONE [Concomitant]
     Active Substance: PREDNISONE

REACTIONS (26)
  - Physical disability [Not Recovered/Not Resolved]
  - Disability [Not Recovered/Not Resolved]
  - Deafness permanent [Not Recovered/Not Resolved]
  - Hallucination, auditory [Unknown]
  - Malaise [Unknown]
  - Auditory disorder [Not Recovered/Not Resolved]
  - Therapeutic product effect incomplete [Unknown]
  - Concomitant disease aggravated [Not Recovered/Not Resolved]
  - Anxiety [Not Recovered/Not Resolved]
  - Pain [Not Recovered/Not Resolved]
  - Injury [Not Recovered/Not Resolved]
  - Emotional distress [Not Recovered/Not Resolved]
  - Impaired quality of life [Not Recovered/Not Resolved]
  - Discomfort [Unknown]
  - Product quality issue [Unknown]
  - Heart rate irregular [Unknown]
  - Ear pain [Unknown]
  - Peripheral swelling [Unknown]
  - Diarrhoea [Unknown]
  - Nausea [Unknown]
  - Headache [Unknown]
  - Fatigue [Unknown]
  - Palpitations [Unknown]
  - Depression [Unknown]
  - Tinnitus [Not Recovered/Not Resolved]
  - Economic problem [Not Recovered/Not Resolved]

NARRATIVE: CASE EVENT DATE: 20210101
